FAERS Safety Report 8879588 (Version 2)
Quarter: 2013Q3

REPORT INFORMATION
  Report Type: Spontaneous
  Country: US (occurrence: None)
  Receive Date: 20120426
  Receipt Date: 20130724
  Transmission Date: 20140515
  Serious: No
  Sender: FDA-Public Use
  Company Number: PHEH2012US002586

PATIENT
  Age: 52 Year
  Sex: Male

DRUGS (5)
  1. GILENYA [Suspect]
     Indication: MULTIPLE SCLEROSIS
     Route: 048
     Dates: start: 20110607
  2. MIRTAZAPINE (MIRTAZAPINE) [Concomitant]
  3. FLOMAX (TAMSULOSIN HYDROCHLORIDE) [Concomitant]
  4. FAMPRIDINE (FAMPRIDINE) [Concomitant]
  5. VESICARE (SOLIFENACIN) [Concomitant]

REACTIONS (3)
  - Fatigue [None]
  - Vitamin D decreased [None]
  - Gait disturbance [None]
